FAERS Safety Report 4726581-6 (Version None)
Quarter: 2005Q3

REPORT INFORMATION
  Report Type: 
  Country: None (occurrence: None)
  Receive Date: 20050726
  Receipt Date: 20050713
  Transmission Date: 20060218
  Serious: Yes (Other)
  Sender: FDA-Public Use
  Company Number: 2005104202

PATIENT
  Age: 53 Year
  Sex: Female

DRUGS (6)
  1. METHYLPREDNISOLONE [Suspect]
     Indication: RHEUMATOID ARTHRITIS
     Dosage: 1 GRAM (DAILY FOR 3 DAYS)
  2. METHYLPREDNISOLONE [Suspect]
     Indication: SJOGREN'S SYNDROME
     Dosage: 1 GRAM (DAILY FOR 3 DAYS)
  3. METHYLPREDNISOLONE [Suspect]
     Indication: SYSTEMIC LUPUS ERYTHEMATOSUS
     Dosage: 1 GRAM (DAILY FOR 3 DAYS)
  4. PREDNISONE [Suspect]
     Indication: RHEUMATOID ARTHRITIS
     Dosage: 1.2 MG/KG (DAILY)
  5. PREDNISONE [Suspect]
     Indication: SJOGREN'S SYNDROME
     Dosage: 1.2 MG/KG (DAILY)
  6. PREDNISONE [Suspect]
     Indication: SYSTEMIC LUPUS ERYTHEMATOSUS
     Dosage: 1.2 MG/KG (DAILY)

REACTIONS (4)
  - BLOOD BETA-D-GLUCAN INCREASED [None]
  - BLOOD LACTATE DEHYDROGENASE INCREASED [None]
  - PNEUMOCYSTIS JIROVECI PNEUMONIA [None]
  - WHITE BLOOD CELL COUNT INCREASED [None]
